FAERS Safety Report 7283318-7 (Version None)
Quarter: 2011Q1

REPORT INFORMATION
  Report Type: 
  Country: None (occurrence: None)
  Receive Date: 20110209
  Receipt Date: 20110201
  Transmission Date: 20110831
  Serious: Yes (Other)
  Sender: FDA-Public Use
  Company Number: US-JNJFOC-20110201408

PATIENT
  Age: 81 Year
  Sex: Female
  Weight: 72.58 kg

DRUGS (4)
  1. COZAAR [Concomitant]
     Indication: HYPERTENSION
  2. ASPIRIN [Concomitant]
     Indication: ANTICOAGULANT THERAPY
  3. PEPCID AC [Suspect]
     Route: 048
  4. PEPCID AC [Suspect]
     Indication: GASTRITIS
     Dosage: 20 MG 1-2 TIMES DAILY
     Route: 048

REACTIONS (3)
  - HALLUCINATION [None]
  - HEADACHE [None]
  - VISUAL IMPAIRMENT [None]
